FAERS Safety Report 21234878 (Version 2)
Quarter: 2022Q4

REPORT INFORMATION
  Report Type: Report from Study
  Country: CA (occurrence: CA)
  Receive Date: 20220820
  Receipt Date: 20221019
  Transmission Date: 20230113
  Serious: Yes (Death, Hospitalization, Other)
  Sender: FDA-Public Use
  Company Number: CA-HLS-202201403

PATIENT
  Sex: Female

DRUGS (1)
  1. CLOZARIL [Suspect]
     Active Substance: CLOZAPINE
     Indication: Product used for unknown indication
     Route: 048
     Dates: start: 20220517

REACTIONS (3)
  - Haemorrhage [Fatal]
  - Neoplasm malignant [Unknown]
  - Pneumonia [Unknown]
